FAERS Safety Report 6252695-8 (Version None)
Quarter: 2009Q2

REPORT INFORMATION
  Report Type: 
  Country: None (occurrence: None)
  Receive Date: 20090629
  Receipt Date: 20090617
  Transmission Date: 20091009
  Serious: Yes (Hospitalization)
  Sender: FDA-Public Use
  Company Number: 235954K09USA

PATIENT
  Age: 51 Year
  Sex: Female
  Weight: 77 kg

DRUGS (6)
  1. REBIF [Suspect]
     Indication: MULTIPLE SCLEROSIS
     Dosage: 44 MCG, 3 IN 1 WEEKS, SUBCUTANEOUS
     Route: 058
     Dates: start: 20060517
  2. DILANPIN(PHENYTOIN /00017401/) [Concomitant]
  3. HYDROXYZINE(HYDROXYZINE /00058401/) [Concomitant]
  4. VITAMIN D [Concomitant]
  5. ZOCOR [Concomitant]
  6. LISINOPRIL [Concomitant]

REACTIONS (3)
  - CHEST DISCOMFORT [None]
  - GASTRITIS [None]
  - MYOCARDITIS [None]
